FAERS Safety Report 5975426-5 (Version None)
Quarter: 2008Q4

REPORT INFORMATION
  Report Type: 
  Country: None (occurrence: None)
  Receive Date: 20081202
  Receipt Date: 20071102
  Transmission Date: 20090506
  Serious: Yes (Other)
  Sender: FDA-Public Use
  Company Number: US-AMGEN-QUU249443

PATIENT
  Sex: Male

DRUGS (13)
  1. ENBREL [Suspect]
     Indication: PSORIASIS
     Route: 058
     Dates: start: 20070801, end: 20071001
  2. ENBREL [Suspect]
     Indication: PSORIATIC ARTHROPATHY
  3. HUMULIN 70/30 [Concomitant]
  4. LANTUS [Concomitant]
  5. NOVOLOG [Concomitant]
  6. COZAAR [Concomitant]
  7. PLAVIX [Concomitant]
     Route: 048
  8. TRENTAL [Concomitant]
     Route: 048
  9. LIPITOR [Concomitant]
     Route: 048
  10. NEURONTIN [Concomitant]
     Route: 048
  11. NEURONTIN [Concomitant]
     Route: 048
  12. IMDUR [Concomitant]
     Route: 048
  13. PREVACID [Concomitant]
     Route: 048

REACTIONS (2)
  - CARDIAC FAILURE CONGESTIVE [None]
  - PNEUMONIA [None]
